FAERS Safety Report 8891991 (Version 2)
Quarter: 2012Q4

REPORT INFORMATION
  Report Type: 
  Country: US (occurrence: None)
  Receive Date: 20121031
  Receipt Date: 20121123
  Transmission Date: 20130627
  Serious: Yes (Hospitalization)
  Sender: FDA-Public Use
  Company Number: DSA_60352_2012

PATIENT
  Sex: Female
  Weight: 52.16 kg

DRUGS (2)
  1. XENAZINE (NOT SPECIFIED) [Suspect]
     Indication: HUNTINGTON^S DISEASE
     Route: 048
     Dates: start: 201007
  2. XENAZINE (NOT SPECIFIED) [Suspect]
     Indication: HUNTINGTON^S DISEASE
     Route: 048
     Dates: start: 2011

REACTIONS (1)
  - Pneumonia aspiration [None]
